FAERS Safety Report 5712106-5 (Version None)
Quarter: 2008Q2

REPORT INFORMATION
  Report Type: 
  Country: None (occurrence: None)
  Receive Date: 20080418
  Receipt Date: 20080226
  Transmission Date: 20081010
  Serious: Yes (Death, Hospitalization)
  Sender: FDA-Public Use
  Company Number: TRP_05651_2008

PATIENT
  Sex: Male
  Weight: 80.7403 kg

DRUGS (7)
  1. RIBAVIRIN [Suspect]
     Indication: HEPATITIS C
     Dosage: (1000 MG
  2. INFERGEN [Suspect]
     Indication: HEPATITIS C
     Dosage: (15 UG QD
     Dates: start: 20071018
  3. ENULOSE [Concomitant]
  4. LASIX [Concomitant]
  5. VITAMIN CAP [Concomitant]
  6. ASCORBIC ACID [Concomitant]
  7. VITAMIN E [Concomitant]

REACTIONS (4)
  - ENCEPHALITIS [None]
  - HYPERSOMNIA [None]
  - INFLUENZA LIKE ILLNESS [None]
  - MENINGITIS [None]
